FAERS Safety Report 8076553-1 (Version None)
Quarter: 2012Q1

REPORT INFORMATION
  Report Type: 
  Country: None (occurrence: None)
  Receive Date: 20120127
  Receipt Date: 20120119
  Transmission Date: 20120608
  Serious: Yes (Life-Threatening, Hospitalization, Other)
  Sender: FDA-Public Use
  Company Number: DE-BRISTOL-MYERS SQUIBB COMPANY-16359408

PATIENT
  Age: 44 Year
  Sex: Female
  Weight: 63 kg

DRUGS (10)
  1. CITALOPRAM HYDROBROMIDE [Concomitant]
     Route: 048
     Dates: start: 20100801, end: 20110819
  2. RAMIPRIL [Concomitant]
     Dosage: TABS (DOSAGE FORM 82) WITH A DOSE OF 2 X 2.5 MG DAILY
     Route: 048
     Dates: start: 20100401, end: 20110819
  3. REYATAZ [Suspect]
     Indication: ACQUIRED IMMUNODEFICIENCY SYNDROME
     Dosage: CUMULATIVE DOSE OF REYATAZ TO FIRST ADVERSE REACTION 32700 MG
     Route: 048
     Dates: start: 20110420, end: 20110819
  4. BISOPROLOL FUMARATE [Concomitant]
     Dosage: TABS (DOSAGE FORM 82) WITH A DOSE OF 2 X 2.5 MG
     Route: 048
     Dates: start: 20100401, end: 20110819
  5. COTRIM DS [Suspect]
     Dosage: CUMULATIVE DOSE OF COTRIM FORTE TO 1ST ADVERSE REACTION WAS 58 X 0.5 TABS 1DF:0.5TAB
     Route: 048
     Dates: start: 20110413, end: 20110819
  6. NORVIR [Suspect]
     Dosage: (DOSAGE FORM 82). THE CUMULATIVE DOSE OF NORVIR TO THE FIRST ADVERSE REACTION WAS 10900 MG.
     Route: 048
     Dates: start: 20110420
  7. ADALAT [Concomitant]
     Indication: RAYNAUD'S PHENOMENON
     Dosage: (DOSAGE FORM 5)  CUMULATIVE DOSE OF ADALAT TO THE FIRST ADVERSE REACTION WAS 200 MG
     Route: 048
     Dates: start: 20110728, end: 20110820
  8. TRUVADA [Suspect]
     Dates: end: 20110728
  9. ABACAVIR SULFATE [Suspect]
     Indication: ACQUIRED IMMUNODEFICIENCY SYNDROME
     Dosage: TABS 1DF=82-UNITS NOS CUMULATIVE DOSE OF KIVEXA TO 1ST ADVERSE REACTION WAS 9 TABS
     Route: 048
     Dates: start: 20110729, end: 20110819
  10. FLUCONAZOLE [Concomitant]
     Dosage: 1DF:1CAPS
     Route: 048
     Dates: start: 20110401, end: 20110801

REACTIONS (1)
  - RENAL FAILURE ACUTE [None]
